FAERS Safety Report 20046591 (Version 1)
Quarter: 2021Q4

REPORT INFORMATION
  Report Type: Spontaneous
  Country: US (occurrence: US)
  Receive Date: 20211109
  Receipt Date: 20211109
  Transmission Date: 20220303
  Serious: Yes (Hospitalization, Other)
  Sender: FDA-Public Use
  Company Number: US-drreddys-LIT/USA/21/0143533

PATIENT
  Age: 61 Year
  Sex: Male

DRUGS (4)
  1. COLCHICINE [Interacting]
     Active Substance: COLCHICINE
     Indication: Pleuritic pain
  2. COLCHICINE [Interacting]
     Active Substance: COLCHICINE
     Dosage: LOADING DOSE
  3. CARBAMAZEPINE [Interacting]
     Active Substance: CARBAMAZEPINE
     Indication: Seizure
  4. IBUPROFEN [Concomitant]
     Active Substance: IBUPROFEN
     Indication: Pleuritic pain
     Dosage: THREE TIMES DAILY

REACTIONS (5)
  - Drug level decreased [Unknown]
  - Acute generalised exanthematous pustulosis [Recovering/Resolving]
  - Drug interaction [Unknown]
  - Nausea [Recovered/Resolved]
  - Treatment failure [Recovered/Resolved]
